FAERS Safety Report 6936931-8 (Version None)
Quarter: 2010Q3

REPORT INFORMATION
  Report Type: 
  Country: None (occurrence: None)
  Receive Date: 20100823
  Receipt Date: 20100726
  Transmission Date: 20110219
  Serious: Yes (Other)
  Sender: FDA-Public Use
  Company Number: JP-PFIZER INC-2010086232

PATIENT
  Age: 87 Year
  Sex: Male

DRUGS (4)
  1. GABAPEN [Suspect]
     Indication: POST HERPETIC NEURALGIA
     Dosage: 600 MG/DAY
     Route: 048
     Dates: start: 20100621, end: 20100621
  2. GABAPEN [Suspect]
     Dosage: 1200 MG/DAY
     Route: 048
     Dates: start: 20100622, end: 20100622
  3. GABAPEN [Suspect]
     Dosage: 1800 MG/DAY
     Route: 048
     Dates: start: 20100623, end: 20100708
  4. KEISIKAJUTUBUTO [Concomitant]
     Indication: POST HERPETIC NEURALGIA
     Dosage: UNK
     Route: 048
     Dates: start: 20100704, end: 20100708

REACTIONS (4)
  - BENIGN PROSTATIC HYPERPLASIA [None]
  - CARDIAC FAILURE [None]
  - FACE OEDEMA [None]
  - POSTRENAL FAILURE [None]
